FAERS Safety Report 23516430 (Version 1)
Quarter: 2024Q1

REPORT INFORMATION
  Report Type: Spontaneous
  Country: DE (occurrence: DE)
  Receive Date: 20240213
  Receipt Date: 20240213
  Transmission Date: 20240410
  Serious: No
  Sender: FDA-Public Use
  Company Number: None

PATIENT
  Age: 5 Month
  Sex: Male
  Weight: 4.4 kg

DRUGS (11)
  1. LINEZOLID [Suspect]
     Active Substance: LINEZOLID
     Indication: Off label use
     Dosage: 45 MILLIGRAM, TID (EVERY 8 HOURS)
     Route: 042
     Dates: start: 20220330, end: 20220414
  2. LINEZOLID [Suspect]
     Active Substance: LINEZOLID
     Indication: Shunt infection
  3. CEFOTAXIME [Concomitant]
     Active Substance: CEFOTAXIME SODIUM
     Indication: Product used for unknown indication
     Dosage: 300 MILLIGRAM, QD (EVERY 1 DAY)
     Route: 042
  4. CHOLECALCIFEROL [Concomitant]
     Active Substance: CHOLECALCIFEROL
     Indication: Prophylaxis
     Dosage: 2000 INTERNATIONAL UNIT, QD (EVERY 1 DAY)
     Route: 065
  5. ENALAPRIL [Concomitant]
     Active Substance: ENALAPRIL
     Indication: Hypertension
     Dosage: 0.9 MILLIGRAM
     Route: 048
     Dates: start: 20220329, end: 20220428
  6. HEPARIN SODIUM [Concomitant]
     Active Substance: HEPARIN SODIUM
     Indication: Thrombosis prophylaxis
     Dosage: UNK
     Route: 042
  7. IBUPROFEN [Concomitant]
     Active Substance: IBUPROFEN
     Indication: Antipyresis
     Dosage: 40 MILLIGRAM, QD (EVERY 1 DAY)
     Route: 048
  8. LEVETIRACETAM [Concomitant]
     Active Substance: LEVETIRACETAM
     Indication: Seizure
     Dosage: 130 MILLIGRAM
     Route: 048
  9. METAMIZOLE [Concomitant]
     Active Substance: METAMIZOLE
     Indication: Antipyresis
     Dosage: UNK
     Route: 042
  10. OMEPRAZOLE [Concomitant]
     Active Substance: OMEPRAZOLE
     Indication: Prophylaxis
     Dosage: 4 MILLIGRAM
     Route: 042
  11. PHENOBARBITAL [Concomitant]
     Active Substance: PHENOBARBITAL
     Indication: Seizure
     Dosage: 5 MILLIGRAM
     Route: 048
     Dates: start: 20220323, end: 20220523

REACTIONS (1)
  - Pyrexia [Recovered/Resolved]

NARRATIVE: CASE EVENT DATE: 20220407
